FAERS Safety Report 9372556 (Version 2)
Quarter: 2013Q3

REPORT INFORMATION
  Report Type: Spontaneous
  Country: US (occurrence: US)
  Receive Date: 20130627
  Receipt Date: 20130927
  Transmission Date: 20140515
  Serious: Yes (Hospitalization, Other)
  Sender: FDA-Public Use
  Company Number: US-PFIZER INC-2013189059

PATIENT
  Age: 57 Year
  Sex: Female
  Weight: 47.6 kg

DRUGS (8)
  1. PREMPRO [Suspect]
     Dosage: 1 DF (0.45-1.5MG), 1X/DAY
     Route: 048
  2. ZOCOR [Concomitant]
     Dosage: 40 MG, 1X/DAY (AT BEDTIME)
     Route: 048
  3. ASPIRIN [Concomitant]
     Dosage: 81 MG, 1X/DAY
     Route: 048
  4. ATIVAN [Concomitant]
     Dosage: 1 MG, 2X/DAY
     Route: 048
  5. CYMBALTA [Concomitant]
     Dosage: 60 MG, 1X/DAY
     Route: 048
  6. FISH OIL [Concomitant]
     Dosage: 1000 MG, 1X/DAY
     Route: 048
  7. NITROSTAT [Concomitant]
     Indication: CHEST PAIN
     Dosage: 0.4 MG, AS NEEDED 3 DOSES
     Route: 060
  8. MULTIVITAMINS [Concomitant]
     Dosage: 1 DF, 1X/DAY
     Route: 048

REACTIONS (4)
  - Stress cardiomyopathy [Unknown]
  - Convulsion [Recovered/Resolved]
  - Mental disorder [Recovered/Resolved]
  - Myocardial infarction [Unknown]
